FAERS Safety Report 9830525 (Version 2)
Quarter: 2014Q1

REPORT INFORMATION
  Report Type: Spontaneous
  Country: DE (occurrence: DE)
  Receive Date: 20140120
  Receipt Date: 20140120
  Transmission Date: 20141002
  Serious: Yes (Life-Threatening, Hospitalization, Disabling)
  Sender: FDA-Public Use
  Company Number: DE-BRISTOL-MYERS SQUIBB COMPANY-19463165

PATIENT
  Age: 62 Year
  Sex: Male

DRUGS (6)
  1. ELIQUIS [Suspect]
     Indication: ATRIAL FIBRILLATION
     Route: 048
     Dates: start: 20130913
  2. ASS [Suspect]
     Indication: CEREBROVASCULAR ACCIDENT
     Route: 048
     Dates: start: 20130909, end: 20130913
  3. CONCOR [Concomitant]
     Indication: ATRIAL FIBRILLATION
     Route: 048
  4. COTRIM FORTE [Concomitant]
     Indication: URINARY TRACT INFECTION
     Dosage: 960 MG
     Route: 048
     Dates: start: 20130911, end: 20130916
  5. PANTOZOL [Concomitant]
     Dosage: ONCE IN THE EVENING
  6. DELIX [Concomitant]
     Dosage: ONCE IN THE EVENING

REACTIONS (2)
  - Haemorrhagic stroke [Not Recovered/Not Resolved]
  - CNS ventriculitis [Unknown]
